FAERS Safety Report 6029848-7 (Version None)
Quarter: 2008Q4

REPORT INFORMATION
  Report Type: 
  Country: None (occurrence: None)
  Receive Date: 20081222
  Receipt Date: 20080925
  Transmission Date: 20090506
  Serious: No
  Sender: FDA-Public Use
  Company Number: US-WYE-H06207608

PATIENT
  Age: 65 Year
  Sex: Female

DRUGS (9)
  1. PRISTIQ [Suspect]
     Indication: FATIGUE
     Dosage: ^TAPER OFF^ : 50 MG 1X PER 1 DAY, ORAL
     Route: 048
     Dates: start: 20080101
  2. PRISTIQ [Suspect]
     Indication: POLYMYALGIA RHEUMATICA
     Dosage: ^TAPER OFF^ : 50 MG 1X PER 1 DAY, ORAL
     Route: 048
     Dates: start: 20080101
  3. PRISTIQ [Suspect]
     Indication: FATIGUE
     Dosage: ^TAPER OFF^ : 50 MG 1X PER 1 DAY, ORAL
     Route: 048
     Dates: start: 20080901
  4. PRISTIQ [Suspect]
     Indication: POLYMYALGIA RHEUMATICA
     Dosage: ^TAPER OFF^ : 50 MG 1X PER 1 DAY, ORAL
     Route: 048
     Dates: start: 20080901
  5. OXYCONTIN [Concomitant]
  6. OXYCODONE AND ACETAMINOPHEN [Concomitant]
  7. PREDNISONE TAB [Concomitant]
  8. SYNTHROID [Concomitant]
  9. ALPRAZOLAM [Concomitant]

REACTIONS (9)
  - ANXIETY [None]
  - DECREASED APPETITE [None]
  - DRUG WITHDRAWAL SYNDROME [None]
  - FEELING ABNORMAL [None]
  - HYPERHIDROSIS [None]
  - NERVOUSNESS [None]
  - PERIPHERAL COLDNESS [None]
  - RESTLESSNESS [None]
  - WEIGHT DECREASED [None]
